FAERS Safety Report 4887907-6 (Version None)
Quarter: 2006Q1

REPORT INFORMATION
  Report Type: 
  Country: None (occurrence: None)
  Receive Date: 20060123
  Receipt Date: 20050421
  Transmission Date: 20060701
  Serious: Yes (Hospitalization, Other)
  Sender: FDA-Public Use
  Company Number: US-MERCK-0504USA04253

PATIENT
  Age: 41 Year
  Sex: Female
  Weight: 100 kg

DRUGS (11)
  1. VIOXX [Suspect]
     Indication: MONARTHRITIS
     Route: 048
     Dates: start: 20010101, end: 20040101
  2. NEURONTIN [Concomitant]
     Route: 065
  3. GLUCOPHAGE [Concomitant]
     Route: 065
  4. FOLIC ACID [Concomitant]
     Route: 065
  5. CARDIZEM [Concomitant]
     Route: 048
  6. IBUPROFEN [Concomitant]
     Route: 065
  7. FLEXERIL [Concomitant]
     Route: 065
  8. PRILOSEC [Concomitant]
     Route: 065
  9. TRAZODONE HYDROCHLORIDE [Concomitant]
     Route: 065
  10. WELLBUTRIN [Concomitant]
     Route: 065
  11. ZOLOFT [Concomitant]
     Route: 065

REACTIONS (5)
  - ANGINA PECTORIS [None]
  - ANGINA UNSTABLE [None]
  - CAROTID ARTERY STENOSIS [None]
  - CEREBROVASCULAR ACCIDENT [None]
  - SYNCOPE [None]
